FAERS Safety Report 6092662-0 (Version None)
Quarter: 2009Q1

REPORT INFORMATION
  Report Type: 
  Country: None (occurrence: None)
  Receive Date: 20090225
  Receipt Date: 20090218
  Transmission Date: 20090719
  Serious: Yes (Hospitalization, Other)
  Sender: FDA-Public Use
  Company Number: PHEH2009US01294

PATIENT
  Sex: Female

DRUGS (4)
  1. DIOVAN HCT [Suspect]
     Dosage: 320/25 MG, UNK
     Route: 048
  2. PLAVIX [Concomitant]
     Dosage: 75 MG, UNK
     Route: 048
  3. CRESTOR [Concomitant]
  4. ASPIRIN [Concomitant]

REACTIONS (4)
  - ANEURYSM REPAIR [None]
  - CARDIAC OPERATION [None]
  - CEREBROVASCULAR ACCIDENT [None]
  - NASOPHARYNGITIS [None]
